FAERS Safety Report 9606095 (Version 2)
Quarter: 2014Q2

REPORT INFORMATION
  Report Type: Spontaneous
  Country: US (occurrence: US)
  Receive Date: 20131008
  Receipt Date: 20140519
  Transmission Date: 20141212
  Serious: No
  Sender: FDA-Public Use
  Company Number: US-AMGEN-USASP2013041754

PATIENT
  Age: 78 Year
  Sex: Female

DRUGS (4)
  1. PROLIA [Suspect]
     Indication: PRODUCT USED FOR UNKNOWN INDICATION
     Route: 065
  2. CITRACAL                           /00751520/ [Concomitant]
  3. CITRACAL [Concomitant]
  4. OVER THE COUNTER MEDICATIONS FOR ALLERGIES/SINUSITIS [Concomitant]

REACTIONS (3)
  - Fatigue [Unknown]
  - Asthenia [Unknown]
  - Adverse event [Unknown]
